FAERS Safety Report 19911893 (Version 1)
Quarter: 2021Q4

REPORT INFORMATION
  Report Type: Spontaneous
  Country: CN (occurrence: CN)
  Receive Date: 20211004
  Receipt Date: 20211004
  Transmission Date: 20220303
  Serious: Yes (Other)
  Sender: FDA-Public Use
  Company Number: CN-ABBOTT-2021A-1340508

PATIENT
  Sex: Male

DRUGS (2)
  1. FENOFIBRATE [Suspect]
     Active Substance: FENOFIBRATE
     Indication: Blood triglycerides
     Dosage: 1 CAPSULE ONCE A DAY
     Route: 048
     Dates: start: 2021, end: 2021
  2. FENOFIBRATE [Suspect]
     Active Substance: FENOFIBRATE
     Indication: Hepatic enzyme increased

REACTIONS (2)
  - Hepatic enzyme increased [Recovered/Resolved]
  - Contraindication to medical treatment [Recovered/Resolved]

NARRATIVE: CASE EVENT DATE: 20210101
